FAERS Safety Report 6053767-3 (Version None)
Quarter: 2009Q1

REPORT INFORMATION
  Report Type: 
  Country: None (occurrence: None)
  Receive Date: 20090127
  Receipt Date: 20081003
  Transmission Date: 20090719
  Serious: No
  Sender: FDA-Public Use
  Company Number: US-TEVA-178368USA

PATIENT
  Sex: Female

DRUGS (5)
  1. COPAXONE [Suspect]
     Indication: MULTIPLE SCLEROSIS
     Route: 058
     Dates: start: 20080623
  2. ENABLEX [Concomitant]
  3. DILANTIN [Concomitant]
  4. CLOZARIL [Concomitant]
  5. NEXIUM [Concomitant]

REACTIONS (1)
  - PLATELET COUNT DECREASED [None]
